FAERS Safety Report 5119845-8 (Version None)
Quarter: 2006Q4

REPORT INFORMATION
  Report Type: 
  Country: None (occurrence: None)
  Receive Date: 20061003
  Receipt Date: 20060926
  Transmission Date: 20070319
  Serious: Yes (Other)
  Sender: FDA-Public Use
  Company Number: US-ABBOTT-06P-163-0344978-00

PATIENT
  Sex: Female
  Weight: 92 kg

DRUGS (10)
  1. HUMIRA [Suspect]
     Indication: RHEUMATOID ARTHRITIS
     Route: 058
     Dates: start: 20020101, end: 20060824
  2. HUMIRA [Suspect]
     Route: 058
     Dates: start: 20060926
  3. METHOTREXATE [Concomitant]
     Indication: RHEUMATOID ARTHRITIS
  4. FUROSEMIDE [Concomitant]
     Indication: FLUID RETENTION
  5. ESTROGENS CONJUGATED [Concomitant]
     Indication: DRUG USE FOR UNKNOWN INDICATION
  6. FOLIC ACID [Concomitant]
     Indication: DRUG USE FOR UNKNOWN INDICATION
  7. POTASSIUM [Concomitant]
     Indication: DRUG USE FOR UNKNOWN INDICATION
  8. FLUOXETINE HYDROCHLORIDE [Concomitant]
     Indication: DEPRESSION
  9. AMBIEN CR [Concomitant]
     Indication: INSOMNIA
  10. TRAZODONE HCL [Concomitant]
     Indication: INSOMNIA

REACTIONS (3)
  - BONE EROSION [None]
  - CARTILAGE INJURY [None]
  - SKIN ULCER [None]
